FAERS Safety Report 10395998 (Version 1)
Quarter: 2014Q3

REPORT INFORMATION
  Report Type: Spontaneous
  Country: GB (occurrence: None)
  Receive Date: 20140815
  Receipt Date: 20140815
  Transmission Date: 20150326
  Serious: Yes (Other)
  Sender: FDA-Public Use
  Company Number: None

PATIENT
  Age: 72 Year
  Sex: Female
  Weight: 6.44 kg

DRUGS (1)
  1. BENZOIN TINCTURE [Suspect]
     Active Substance: BENZOIN RESIN
     Indication: THROAT IRRITATION
     Route: 048
     Dates: start: 20140813, end: 20140813

REACTIONS (3)
  - Malaise [None]
  - Palpitations [None]
  - Pallor [None]

NARRATIVE: CASE EVENT DATE: 20140813
